FAERS Safety Report 7963981-5 (Version None)
Quarter: 2011Q4

REPORT INFORMATION
  Report Type: 
  Country: None (occurrence: None)
  Receive Date: 20111208
  Receipt Date: 20111025
  Transmission Date: 20120403
  Serious: No
  Sender: FDA-Public Use
  Company Number: US-BAYER-2011-104378

PATIENT
  Age: 77 Year
  Sex: Female
  Weight: 47 kg

DRUGS (4)
  1. BONIVA [Concomitant]
     Dosage: UNK
  2. ALEVE (CAPLET) [Suspect]
     Indication: BACK PAIN
     Dosage: UNK
     Route: 048
     Dates: start: 20111021, end: 20111021
  3. CALCIUM VIT D [Concomitant]
     Dosage: UNK
  4. VITAMIN K TAB [Concomitant]
     Dosage: UNK

REACTIONS (2)
  - BALANCE DISORDER [None]
  - THERAPEUTIC RESPONSE DECREASED [None]
